FAERS Safety Report 4725620-6 (Version None)
Quarter: 2005Q3

REPORT INFORMATION
  Report Type: 
  Country: None (occurrence: None)
  Receive Date: 20050727
  Receipt Date: 20050309
  Transmission Date: 20060218
  Serious: Yes (Hospitalization)
  Sender: FDA-Public Use
  Company Number: US-MERCK-0503USA01755

PATIENT
  Age: 80 Year
  Sex: Male
  Weight: 82 kg

DRUGS (6)
  1. VIOXX [Suspect]
     Indication: ARTHRITIS
     Route: 048
     Dates: start: 20040202, end: 20040930
  2. PROCARDIA [Concomitant]
     Route: 065
  3. HYTRIN [Concomitant]
     Route: 065
  4. PREVACID [Concomitant]
     Route: 065
  5. DIPYRIDAMOLE [Concomitant]
     Route: 065
  6. NIFEDIPINE [Concomitant]
     Route: 065

REACTIONS (7)
  - ASTHENIA [None]
  - ATRIOVENTRICULAR BLOCK SECOND DEGREE [None]
  - CEREBROVASCULAR ACCIDENT [None]
  - CORONARY ARTERY DISEASE [None]
  - EMOTIONAL DISTRESS [None]
  - FALL [None]
  - GAIT DISTURBANCE [None]
